FAERS Safety Report 21424425 (Version 1)
Quarter: 2022Q4

REPORT INFORMATION
  Report Type: Spontaneous
  Country: CN (occurrence: CN)
  Receive Date: 20221007
  Receipt Date: 20221007
  Transmission Date: 20230113
  Serious: Yes (Hospitalization)
  Sender: FDA-Public Use
  Company Number: CN-FreseniusKabi-FK202213374

PATIENT
  Age: 81 Year
  Sex: Female
  Weight: 46 kg

DRUGS (1)
  1. INTRALIPID [Suspect]
     Active Substance: EGG PHOSPHOLIPIDS\GLYCERIN\SOYBEAN OIL
     Indication: Malnutrition
     Dosage: 250 ML
     Route: 041
     Dates: start: 20220816, end: 20220816

REACTIONS (3)
  - Palpitations [Recovering/Resolving]
  - Tremor [Recovering/Resolving]
  - Chest discomfort [Recovering/Resolving]

NARRATIVE: CASE EVENT DATE: 20220816
